FAERS Safety Report 7033036-5 (Version None)
Quarter: 2010Q4

REPORT INFORMATION
  Report Type: 
  Country: None (occurrence: None)
  Receive Date: 20101007
  Receipt Date: 20100928
  Transmission Date: 20110411
  Serious: Yes (Hospitalization)
  Sender: FDA-Public Use
  Company Number: ES-PFIZER INC-2010122702

PATIENT
  Age: 53 Year
  Sex: Male

DRUGS (9)
  1. BLINDED *NO SUBJECT DRUG [Suspect]
     Indication: RENAL CANCER
     Dosage: 50 MG DAILY, CYCLES OF 28 DAYS
     Route: 048
     Dates: start: 20100913
  2. BLINDED *PLACEBO [Suspect]
     Indication: RENAL CANCER
     Dosage: 50 MG DAILY, CYCLES OF 28 DAYS
     Route: 048
     Dates: start: 20100913
  3. SUNITINIB MALATE [Suspect]
     Indication: RENAL CANCER
     Dosage: 50 MG DAILY, CYCLES OF 28 DAYS
     Route: 048
     Dates: start: 20100913
  4. INNOHEP [Concomitant]
     Dosage: 0.5 MG, UNK
     Route: 058
  5. LORAZEPAM [Concomitant]
     Dosage: 1 MG, UNK
     Route: 048
  6. METFORMIN HYDROCHLORIDE/SITAGLIPTIN PHOSPHATE [Concomitant]
     Dosage: 1000/50
     Route: 058
  7. SECALIP [Concomitant]
     Dosage: 145 MG, UNK
     Route: 048
  8. OMEPRAZOLE [Concomitant]
     Dosage: UNK
     Route: 048
  9. ENANTYUM [Concomitant]
     Dosage: 25 (UNKNOWN  UNIT AND FREQUENCY)
     Route: 030

REACTIONS (2)
  - RENAL FAILURE ACUTE [None]
  - VOMITING [None]
